FAERS Safety Report 12232683 (Version 2)
Quarter: 2016Q2

REPORT INFORMATION
  Report Type: Spontaneous
  Country: US (occurrence: US)
  Receive Date: 20160401
  Receipt Date: 20160629
  Transmission Date: 20160815
  Serious: No
  Sender: FDA-Public Use
  Company Number: US-ASTRAZENECA-2016SE23192

PATIENT
  Sex: Female
  Weight: 90.7 kg

DRUGS (5)
  1. MONTALUKAST [Concomitant]
     Indication: ASTHMA
     Dosage: DAILY
     Route: 055
  2. LORATADINE. [Concomitant]
     Active Substance: LORATADINE
     Indication: ASTHMA
     Route: 048
  3. IRBESARTAN. [Concomitant]
     Active Substance: IRBESARTAN
     Indication: HYPERTENSION
     Route: 048
  4. AMLODIPINE [Concomitant]
     Active Substance: AMLODIPINE BESYLATE
     Indication: HYPERTENSION
     Route: 048
  5. SYMBICORT [Suspect]
     Active Substance: BUDESONIDE\FORMOTEROL FUMARATE DIHYDRATE
     Indication: ASTHMA
     Dosage: 160/4.5 MCG 120 INHALATIONS, TWO TIMES A DAY
     Route: 055
     Dates: start: 2014

REACTIONS (3)
  - Drug dose omission [Unknown]
  - Intentional product misuse [Unknown]
  - Product quality issue [Unknown]
